FAERS Safety Report 7077698-5 (Version None)
Quarter: 2010Q4

REPORT INFORMATION
  Report Type: 
  Country: None (occurrence: None)
  Receive Date: 20101101
  Receipt Date: 20101020
  Transmission Date: 20110411
  Serious: Yes (Hospitalization, Other)
  Sender: FDA-Public Use
  Company Number: US-ELI_LILLY_AND_COMPANY-US201008000763

PATIENT
  Sex: Female
  Weight: 59.41 kg

DRUGS (11)
  1. FORTEO [Suspect]
     Indication: OSTEOPOROSIS
     Dosage: 20 UG, DAILY (1/D)
     Route: 065
     Dates: start: 20100616, end: 20100723
  2. FORTEO [Suspect]
     Dosage: 20 UG, DAILY (1/D)
     Route: 065
  3. RISPERDAL [Concomitant]
     Dosage: 1 D/F, DAILY (1/D)
     Dates: start: 20091124
  4. STRONTIUM CHLORIDE [Concomitant]
     Dosage: 68 MG, DAILY (1/D)
  5. LOVAZA [Concomitant]
     Dosage: 1 D/F, DAILY (1/D)
  6. ATENOLOL [Concomitant]
     Dosage: 50 MG, DAILY (1/D)
     Dates: start: 20091022
  7. DIGESTIVE ENZYMES [Concomitant]
     Dosage: 1 D/F, 3/D
  8. PROGESTERONE [Concomitant]
     Dosage: 0.5 ML, DAILY (1/D)
     Dates: start: 20080102
  9. TESTOSTERONE [Concomitant]
     Dosage: 0.5 ML, DAILY (1/D)
     Dates: start: 20071218
  10. PRASTERONE [Concomitant]
     Dosage: 0.5 ML, DAILY (1/D)
     Dates: start: 20071218
  11. CLOBETASOL PROPIONATE [Concomitant]
     Dosage: UNK, TWICE DAILY AS NEEDED
     Dates: start: 20040802

REACTIONS (1)
  - LIP AND/OR ORAL CAVITY CANCER [None]
